FAERS Safety Report 9495129 (Version 1)
Quarter: 2013Q3

REPORT INFORMATION
  Report Type: Report from Study
  Country: JP (occurrence: JP)
  Receive Date: 20130903
  Receipt Date: 20130903
  Transmission Date: 20140515
  Serious: Yes (Death, Other)
  Sender: FDA-Public Use
  Company Number: JP-GENZYME-THYM-1004075

PATIENT
  Age: 71 Year
  Sex: Male
  Weight: 57 kg

DRUGS (22)
  1. THYMOGLOBULIN [Suspect]
     Indication: APLASTIC ANAEMIA
     Dosage: UNK
     Route: 065
  2. PREDONINE [Concomitant]
     Indication: APLASTIC ANAEMIA
     Dosage: UNK
     Route: 065
     Dates: start: 20120725, end: 20121016
  3. NEORAL [Concomitant]
     Indication: APLASTIC ANAEMIA
     Dosage: UNK
     Route: 065
     Dates: start: 20120725, end: 20121016
  4. PRIMOBOLAN [Concomitant]
     Indication: APLASTIC ANAEMIA
     Dosage: UNK
     Route: 065
     Dates: start: 20120904, end: 20121010
  5. GLAKAY [Concomitant]
     Indication: APLASTIC ANAEMIA
     Dosage: UNK
     Route: 065
     Dates: start: 20120904, end: 20121010
  6. D ALFA [Concomitant]
     Indication: APLASTIC ANAEMIA
     Dosage: UNK
     Route: 065
     Dates: start: 20120904, end: 20121010
  7. GRAN [Concomitant]
     Indication: APLASTIC ANAEMIA
     Dosage: UNK
     Route: 065
     Dates: start: 20120725, end: 20121016
  8. PRIDOL [Concomitant]
     Indication: APLASTIC ANAEMIA
     Dosage: UNK
     Route: 065
     Dates: start: 20120907, end: 20120911
  9. TAKEPRON [Concomitant]
     Indication: HAEMORRHAGE PROPHYLAXIS
     Dosage: UNK
     Route: 065
     Dates: start: 20120725, end: 20121010
  10. RIKKUNSHITO [Concomitant]
     Indication: DECREASED APPETITE
     Dosage: UNK
     Route: 065
     Dates: start: 20120826, end: 20121010
  11. ISCOTIN [Concomitant]
     Indication: INFECTION PROPHYLAXIS
     Dosage: UNK
     Route: 065
     Dates: start: 20120725, end: 20121010
  12. BAKTAR [Concomitant]
     Indication: INFECTION PROPHYLAXIS
     Dosage: UNK
     Route: 065
     Dates: start: 20120725, end: 20121016
  13. BAKTAR [Concomitant]
     Indication: PNEUMOCYSTIS JIROVECII PNEUMONIA
  14. BACTRAMIN [Concomitant]
     Indication: INFECTION PROPHYLAXIS
     Dosage: UNK
     Route: 065
     Dates: start: 20120725, end: 20121016
  15. BACTRAMIN [Concomitant]
     Indication: PNEUMOCYSTIS JIROVECII PNEUMONIA
  16. PYDOXAL [Concomitant]
     Indication: VITAMIN SUPPLEMENTATION
     Dosage: UNK
     Route: 065
     Dates: start: 20120725, end: 20121010
  17. POLYMYXIN B [Concomitant]
     Indication: INFECTION PROPHYLAXIS
     Dosage: UNK
     Route: 065
     Dates: start: 20120725, end: 20121010
  18. BIOFERMIN R [Concomitant]
     Indication: PROPHYLAXIS
     Dosage: UNK
     Route: 065
     Dates: start: 20120725, end: 20121010
  19. HALIZON [Concomitant]
     Indication: INFECTION PROPHYLAXIS
     Dosage: UNK
     Route: 065
     Dates: start: 20120725, end: 20121001
  20. FENTANYL [Concomitant]
     Indication: SEDATION
     Dosage: UNK
     Route: 065
     Dates: start: 20121010, end: 20121016
  21. MIDAZOLAM [Concomitant]
     Indication: PROPHYLAXIS
     Dosage: UNK
     Route: 065
     Dates: start: 20121010, end: 20121016
  22. MIDAZOLAM [Concomitant]
     Indication: SEDATION

REACTIONS (3)
  - Febrile neutropenia [Unknown]
  - Oedema [Unknown]
  - Cytomegalovirus infection [Fatal]
